FAERS Safety Report 9857133 (Version 1)
Quarter: 2014Q1

REPORT INFORMATION
  Report Type: Report from Study
  Country: US (occurrence: US)
  Receive Date: 20140130
  Receipt Date: 20140130
  Transmission Date: 20141002
  Serious: Yes (Hospitalization)
  Sender: FDA-Public Use
  Company Number: US-ABBVIE-14P-163-1193268-00

PATIENT
  Age: 46 Year
  Sex: Male
  Weight: 83.99 kg

DRUGS (9)
  1. HUMIRA [Suspect]
     Indication: COLITIS ULCERATIVE
     Dates: start: 201310, end: 201310
  2. HUMIRA [Suspect]
     Dosage: TWO WEEKS AFTER 160 MG DOSE
     Dates: start: 2013, end: 2013
  3. HUMIRA [Suspect]
     Dosage: FOUR WEEKS AFTER 160 MG DOSE
     Dates: start: 2013, end: 201312
  4. HUMIRA [Suspect]
  5. ALENDRONATE [Concomitant]
     Indication: OSTEOPOROSIS
     Dates: start: 20131205
  6. FOLIC ACID [Concomitant]
     Indication: VITAMIN SUPPLEMENTATION
  7. MULTIVITAMIN [Concomitant]
     Indication: VITAMIN SUPPLEMENTATION
  8. PROBIOTICS [Concomitant]
     Indication: COLITIS ULCERATIVE
  9. IRON [Concomitant]
     Indication: ANAEMIA

REACTIONS (8)
  - Clostridium test positive [Unknown]
  - Diarrhoea [Recovering/Resolving]
  - Pyrexia [Recovered/Resolved]
  - Headache [Recovering/Resolving]
  - Injection site haemorrhage [Not Recovered/Not Resolved]
  - Injection site bruising [Not Recovered/Not Resolved]
  - Colitis ulcerative [Unknown]
  - Infection [Unknown]
